FAERS Safety Report 15674148 (Version 1)
Quarter: 2018Q4

REPORT INFORMATION
  Report Type: Spontaneous
  Country: ES (occurrence: ES)
  Receive Date: 20181130
  Receipt Date: 20181130
  Transmission Date: 20190205
  Serious: Yes (Hospitalization)
  Sender: FDA-Public Use
  Company Number: ES-TEVA-2018-ES-979973

PATIENT
  Age: 75 Year
  Sex: Female

DRUGS (2)
  1. SIMVASTATINA  ALTER 10 MG COMPRIMIDOS RECUBIERTOS CON PELICULA EFG , 2 [Concomitant]
     Route: 065
     Dates: start: 201512
  2. METFORMINA [Suspect]
     Active Substance: METFORMIN HYDROCHLORIDE
     Route: 065
     Dates: start: 201703

REACTIONS (1)
  - Alanine aminotransferase increased [Unknown]

NARRATIVE: CASE EVENT DATE: 20180522
